FAERS Safety Report 13118196 (Version 4)
Quarter: 2023Q2

REPORT INFORMATION
  Report Type: Spontaneous
  Country: US (occurrence: US)
  Receive Date: 20170116
  Receipt Date: 20230502
  Transmission Date: 20230722
  Serious: No
  Sender: FDA-Public Use
  Company Number: US-JNJFOC-20161218078

PATIENT
  Age: 1 Decade
  Sex: Male

DRUGS (5)
  1. RISPERDAL [Suspect]
     Active Substance: RISPERIDONE
     Indication: Attention deficit hyperactivity disorder
     Route: 048
     Dates: start: 2003, end: 2004
  2. RISPERDAL [Suspect]
     Active Substance: RISPERIDONE
     Route: 048
     Dates: end: 20050519
  3. RISPERDAL [Suspect]
     Active Substance: RISPERIDONE
     Route: 048
     Dates: start: 20060217, end: 20121222
  4. RISPERDAL [Suspect]
     Active Substance: RISPERIDONE
     Route: 048
     Dates: end: 20130905
  5. RISPERDAL [Suspect]
     Active Substance: RISPERIDONE
     Dosage: HE STOPPED TAKING AT AGE OF 19 (BETWEEN DEC-2013 TO NOV-2014)
     Route: 048

REACTIONS (4)
  - Gynaecomastia [Unknown]
  - Abnormal weight gain [Unknown]
  - Off label use [Unknown]
  - Product use in unapproved indication [Unknown]

NARRATIVE: CASE EVENT DATE: 20030101
